FAERS Safety Report 5736284-7 (Version None)
Quarter: 2008Q2

REPORT INFORMATION
  Report Type: 
  Country: None (occurrence: None)
  Receive Date: 20080508
  Receipt Date: 20080422
  Transmission Date: 20081010
  Serious: Yes (Hospitalization)
  Sender: FDA-Public Use
  Company Number: S08-FRA-01680-01

PATIENT
  Age: 30 Year
  Sex: Female

DRUGS (3)
  1. ESCITALOPRAM [Suspect]
     Indication: DEPRESSION
     Dates: start: 20030101, end: 20071019
  2. LEXOMIL (BROMAZEPAM) [Suspect]
     Indication: ANXIETY
     Dosage: 0.5 QD PO
     Route: 048
     Dates: start: 20030101, end: 20071018
  3. LEXOMIL (BROMAZEPAM) [Suspect]
     Indication: ANXIETY
     Dates: start: 20071019

REACTIONS (5)
  - AUTOIMMUNE HEPATITIS [None]
  - CHOLANGITIS SCLEROSING [None]
  - HEPATIC STEATOSIS [None]
  - HEPATITIS [None]
  - HEPATITIS INFECTIOUS [None]
